FAERS Safety Report 6904784-X (Version None)
Quarter: 2010Q3

REPORT INFORMATION
  Report Type: 
  Country: None (occurrence: None)
  Receive Date: 20100804
  Receipt Date: 20090708
  Transmission Date: 20110219
  Serious: No
  Sender: FDA-Public Use
  Company Number: US-PFIZER INC-2009216445

PATIENT
  Sex: Female
  Weight: 164.65 kg

DRUGS (10)
  1. LYRICA [Suspect]
     Indication: NEUROPATHY PERIPHERAL
     Dosage: UNK
  2. NEURONTIN [Suspect]
     Indication: NEUROPATHY PERIPHERAL
  3. CYMBALTA [Concomitant]
     Dosage: UNK
  4. THYROID TAB [Concomitant]
     Dosage: UNK
  5. ZETIA [Concomitant]
     Dosage: UNK
  6. VESICARE [Concomitant]
     Dosage: UNK
  7. TRAMADOL [Concomitant]
     Dosage: UNK
  8. LASIX [Concomitant]
     Dosage: UNK
  9. POTASSIUM CHLORIDE [Concomitant]
     Dosage: UNK
  10. IBUPROFEN [Concomitant]
     Dosage: UNK

REACTIONS (6)
  - BLOOD GLUCOSE ABNORMAL [None]
  - DIZZINESS [None]
  - INSOMNIA [None]
  - JOINT SWELLING [None]
  - NAUSEA [None]
  - WEIGHT INCREASED [None]
